FAERS Safety Report 16871845 (Version 1)
Quarter: 2019Q4

REPORT INFORMATION
  Report Type: Report from Study
  Country: ID (occurrence: ID)
  Receive Date: 20191001
  Receipt Date: 20191001
  Transmission Date: 20200122
  Serious: Yes (Other)
  Sender: FDA-Public Use
  Company Number: ID-ROCHE-2419259

PATIENT

DRUGS (1)
  1. BEVACIZUMAB. [Suspect]
     Active Substance: BEVACIZUMAB
     Indication: DIABETIC RETINOPATHY
     Route: 050

REACTIONS (5)
  - Vitreous haemorrhage [Unknown]
  - Cataract [Unknown]
  - Retinal detachment [Unknown]
  - Product use issue [Unknown]
  - Off label use [Unknown]
